FAERS Safety Report 8204001-7 (Version None)
Quarter: 2012Q1

REPORT INFORMATION
  Report Type: 
  Country: None (occurrence: None)
  Receive Date: 20120313
  Receipt Date: 20120307
  Transmission Date: 20120608
  Serious: No
  Sender: FDA-Public Use
  Company Number: US-PFIZER INC-2012062178

PATIENT
  Sex: Male
  Weight: 63.49 kg

DRUGS (5)
  1. RISPERIDONE [Concomitant]
     Indication: SCHIZOAFFECTIVE DISORDER
     Dosage: 2 MG, DAILY
  2. KLONOPIN [Concomitant]
     Indication: ANXIETY
     Dosage: 0.5 MG, 3X/DAY
  3. AMBIEN [Concomitant]
     Indication: INSOMNIA
     Dosage: 10 MG, DAILY
  4. EFFEXOR XR [Suspect]
     Indication: DEPRESSION
     Dosage: 75 MG, DAILY
     Dates: start: 20111001
  5. TRILEPTAL [Concomitant]
     Indication: ANXIETY
     Dosage: 150 MG, 2X/DAY

REACTIONS (2)
  - RESTLESSNESS [None]
  - ANXIETY [None]
